FAERS Safety Report 17450457 (Version 1)
Quarter: 2020Q1

REPORT INFORMATION
  Report Type: Spontaneous
  Country: US (occurrence: US)
  Receive Date: 20200210
  Receipt Date: 20200210
  Transmission Date: 20200409
  Serious: Yes (Hospitalization)
  Sender: FDA-Public Use
  Company Number: None

PATIENT
  Age: 67 Year
  Sex: Male

DRUGS (6)
  1. ENBREL [Suspect]
     Active Substance: ETANERCEPT
     Indication: PSORIATIC ARTHROPATHY
     Dates: start: 20170207
  2. PRILOSEC [Concomitant]
     Active Substance: OMEPRAZOLE MAGNESIUM
  3. METHOTREXATE. [Concomitant]
     Active Substance: METHOTREXATE
  4. METOPROLOL. [Concomitant]
     Active Substance: METOPROLOL
  5. MULTIVITAMIN [Concomitant]
     Active Substance: VITAMINS
  6. ROSUVASTATIN. [Concomitant]
     Active Substance: ROSUVASTATIN

REACTIONS (2)
  - Deep vein thrombosis [None]
  - Knee operation [None]

NARRATIVE: CASE EVENT DATE: 20200101
